FAERS Safety Report 17164525 (Version 3)
Quarter: 2020Q4

REPORT INFORMATION
  Report Type: Spontaneous
  Country: US (occurrence: US)
  Receive Date: 20191217
  Receipt Date: 20201209
  Transmission Date: 20210113
  Serious: No
  Sender: FDA-Public Use
  Company Number: US-PFIZER INC-2019539579

PATIENT
  Age: 67 Year
  Sex: Female
  Weight: 53.07 kg

DRUGS (1)
  1. EFFEXOR XR [Suspect]
     Active Substance: VENLAFAXINE HYDROCHLORIDE
     Indication: DEPRESSION
     Dosage: 150 MG, 1X/DAY
     Route: 048
     Dates: start: 2008

REACTIONS (3)
  - Product dose omission issue [Unknown]
  - Constipation [Unknown]
  - Feeling abnormal [Unknown]
